FAERS Safety Report 21170568 (Version 1)
Quarter: 2022Q3

REPORT INFORMATION
  Report Type: Spontaneous
  Country: RU (occurrence: RU)
  Receive Date: 20220804
  Receipt Date: 20220804
  Transmission Date: 20221027
  Serious: No
  Sender: FDA-Public Use
  Company Number: RU-009507513-2208RUS001766

PATIENT
  Sex: Female

DRUGS (1)
  1. LAGEVRIO [Suspect]
     Active Substance: MOLNUPIRAVIR
     Indication: COVID-19
     Dosage: 2 TABLETS IN THE MORNING AND 2 IN THE EVENING
     Route: 048

REACTIONS (2)
  - Product prescribing issue [Unknown]
  - Product use issue [Unknown]
